FAERS Safety Report 19963796 (Version 1)
Quarter: 2021Q4

REPORT INFORMATION
  Report Type: Spontaneous
  Country: US (occurrence: US)
  Receive Date: 20211013
  Receipt Date: 20211013
  Transmission Date: 20220304
  Serious: Yes (Hospitalization)
  Sender: FDA-Public Use
  Company Number: None

PATIENT
  Age: 24 Year
  Sex: Female
  Weight: 80.5 kg

DRUGS (7)
  1. CYTARABINE [Suspect]
     Active Substance: CYTARABINE
     Dates: end: 20210813
  2. MERCAPTOPURINE [Suspect]
     Active Substance: MERCAPTOPURINE
     Dates: end: 20210816
  3. CYCLOPHOSPHAMIDE [Suspect]
     Active Substance: CYCLOPHOSPHAMIDE
     Dates: end: 20210803
  4. VINCRISTINE SULFATE [Suspect]
     Active Substance: VINCRISTINE SULFATE
     Dates: end: 20210824
  5. METHOTREXATE [Suspect]
     Active Substance: METHOTREXATE
     Dates: end: 20210824
  6. RITUXIMAB [Suspect]
     Active Substance: RITUXIMAB
     Dates: end: 20210410
  7. ONCASPAR [Suspect]
     Active Substance: PEGASPARGASE
     Dates: end: 20210817

REACTIONS (7)
  - Febrile neutropenia [None]
  - Odynophagia [None]
  - Oesophageal candidiasis [None]
  - Oropharyngeal pain [None]
  - Full blood count decreased [None]
  - Diplopia [None]
  - Nausea [None]

NARRATIVE: CASE EVENT DATE: 20210825
